FAERS Safety Report 9613021 (Version 2)
Quarter: 2013Q4

REPORT INFORMATION
  Report Type: Spontaneous
  Country: US (occurrence: US)
  Receive Date: 20131010
  Receipt Date: 20131010
  Transmission Date: 20140711
  Serious: Yes (Hospitalization, Other)
  Sender: FDA-Public Use
  Company Number: US-BAXTER-2013BAX038651

PATIENT
  Age: 69 Year
  Sex: Female

DRUGS (1)
  1. DIANEAL PD2 [Suspect]
     Indication: PERITONEAL DIALYSIS
     Route: 033
     Dates: start: 201209

REACTIONS (4)
  - Pneumonia [Recovered/Resolved]
  - Pancreatitis relapsing [Recovering/Resolving]
  - Hypotension [Recovered/Resolved]
  - Blood triglycerides increased [Unknown]
